FAERS Safety Report 18082499 (Version 2)
Quarter: 2020Q3

REPORT INFORMATION
  Report Type: Spontaneous
  Country: CA (occurrence: CA)
  Receive Date: 20200729
  Receipt Date: 20200731
  Transmission Date: 20201103
  Serious: Yes (Other)
  Sender: FDA-Public Use
  Company Number: CA-SA-2020SA189438

PATIENT

DRUGS (1)
  1. ALIROCUMAB [Suspect]
     Active Substance: ALIROCUMAB
     Dosage: 75 MG
     Dates: start: 2018

REACTIONS (6)
  - Condition aggravated [Unknown]
  - Autoimmune disorder [Unknown]
  - Skin lesion inflammation [Unknown]
  - Cheilitis [Unknown]
  - Skin discolouration [Unknown]
  - Off label use [Unknown]

NARRATIVE: CASE EVENT DATE: 202001
